FAERS Safety Report 9789672 (Version 1)
Quarter: 2013Q4

REPORT INFORMATION
  Report Type: Spontaneous
  Country: US (occurrence: None)
  Receive Date: 20131227
  Receipt Date: 20131227
  Transmission Date: 20140711
  Serious: Yes (Death)
  Sender: FDA-Public Use
  Company Number: 2093016

PATIENT
  Sex: Male

DRUGS (1)
  1. PRECEDEX (DEXMEDETOMIDINE HYDROCHLORIDE) INJECTION (DEXMEDETOMIDINE HYDROCHLORIDE) [Suspect]
     Indication: PRODUCT USED FOR UNKNOWN INDICATION
     Route: 040
     Dates: start: 20131028, end: 20131028

REACTIONS (4)
  - Cardiac arrest [None]
  - Incorrect drug administration rate [None]
  - Incorrect dose administered [None]
  - Circumstance or information capable of leading to medication error [None]
